FAERS Safety Report 10016768 (Version 2)
Quarter: 2014Q2

REPORT INFORMATION
  Report Type: Spontaneous
  Country: HU (occurrence: HU)
  Receive Date: 20140318
  Receipt Date: 20140414
  Transmission Date: 20141212
  Serious: Yes (Other)
  Sender: FDA-Public Use
  Company Number: HU-ROCHE-1360903

PATIENT
  Age: 52 Year
  Sex: Male

DRUGS (6)
  1. MABTHERA [Suspect]
     Indication: RHEUMATOID ARTHRITIS
     Dosage: NO. OF CYCLES:10
     Route: 042
     Dates: start: 20080716, end: 20131002
  2. METHOTREXATE [Concomitant]
     Indication: RHEUMATOID ARTHRITIS
     Route: 048
     Dates: start: 20080716, end: 20131002
  3. METHYLPREDNISOLON [Concomitant]
     Indication: RHEUMATOID ARTHRITIS
     Route: 065
     Dates: start: 1997
  4. ACECLOFENAC [Concomitant]
     Indication: RHEUMATOID ARTHRITIS
     Route: 065
     Dates: start: 20120530, end: 20131002
  5. COLECALCIFEROL [Concomitant]
     Route: 065
     Dates: start: 20120514
  6. FOLIC ACID [Concomitant]
     Route: 065
     Dates: start: 20080716, end: 20131002

REACTIONS (2)
  - Hepatitis C virus test positive [Unknown]
  - Hepatitis B e antigen positive [Unknown]
